FAERS Safety Report 18647916 (Version 1)
Quarter: 2020Q4

REPORT INFORMATION
  Report Type: Spontaneous
  Country: CN (occurrence: CN)
  Receive Date: 20201222
  Receipt Date: 20201222
  Transmission Date: 20210114
  Serious: Yes (Other)
  Sender: FDA-Public Use
  Company Number: CN-ROCHE-2732604

PATIENT
  Age: 66 Year
  Sex: Male

DRUGS (43)
  1. XELODA [Suspect]
     Active Substance: CAPECITABINE
     Route: 048
     Dates: start: 20190828
  2. CETUXIMAB. [Suspect]
     Active Substance: CETUXIMAB
     Route: 041
     Dates: start: 20201027
  3. FLUOROURACIL. [Suspect]
     Active Substance: FLUOROURACIL
     Dosage: 700MG VIA INTRAVENOUS INJECTION, 4000MG VIA MICROINJECTION PUMP LASTING FOR 46 HOURS
     Route: 042
     Dates: start: 20200909
  4. FLUOROURACIL. [Suspect]
     Active Substance: FLUOROURACIL
     Dosage: 700MG VIA INTRAVENOUS INJECTION, 4000MG VIA MICROINJECTION PUMP LASTING FOR 46 HOURS
     Route: 042
     Dates: start: 20201027
  5. OXALIPLATIN. [Concomitant]
     Active Substance: OXALIPLATIN
     Indication: RECTAL CANCER METASTATIC
     Dates: start: 20190501
  6. IRINOTECAN HYDROCHLORIDE. [Suspect]
     Active Substance: IRINOTECAN HYDROCHLORIDE
     Route: 041
     Dates: start: 20200923
  7. IRINOTECAN HYDROCHLORIDE. [Suspect]
     Active Substance: IRINOTECAN HYDROCHLORIDE
     Route: 041
     Dates: start: 20201112
  8. CALCIUM FOLINATE [Suspect]
     Active Substance: LEUCOVORIN CALCIUM
     Indication: RECTAL CANCER METASTATIC
     Dosage: DAY 1, 1-MAY-2019
     Route: 065
     Dates: start: 20190501
  9. CALCIUM FOLINATE [Suspect]
     Active Substance: LEUCOVORIN CALCIUM
     Route: 042
     Dates: start: 20200825
  10. FLUOROURACIL. [Suspect]
     Active Substance: FLUOROURACIL
     Dosage: 700MG VIA INTRAVENOUS INJECTION, 4000MG VIA MICROINJECTION PUMP LASTING FOR 46 HOURS
     Route: 042
     Dates: start: 20190518
  11. OXALIPLATIN. [Concomitant]
     Active Substance: OXALIPLATIN
     Route: 041
     Dates: start: 20190922
  12. IRINOTECAN HYDROCHLORIDE. [Suspect]
     Active Substance: IRINOTECAN HYDROCHLORIDE
     Indication: RECTAL CANCER METASTATIC
     Dosage: DAY 1
     Route: 041
     Dates: start: 20200825
  13. CALCIUM FOLINATE [Suspect]
     Active Substance: LEUCOVORIN CALCIUM
     Route: 042
     Dates: start: 20200909
  14. FLUOROURACIL. [Suspect]
     Active Substance: FLUOROURACIL
     Dosage: 700MG VIA INTRAVENOUS INJECTION, 4000MG VIA MICROINJECTION PUMP LASTING FOR 46 HOURS
     Route: 042
     Dates: start: 20200923
  15. FLUOROURACIL. [Suspect]
     Active Substance: FLUOROURACIL
     Dosage: 700MG VIA INTRAVENOUS INJECTION, 4000MG VIA MICROINJECTION PUMP LASTING FOR 46 HOURS
     Route: 042
     Dates: start: 20201112
  16. OXALIPLATIN. [Concomitant]
     Active Substance: OXALIPLATIN
     Dosage: DAY 1
     Route: 041
     Dates: start: 20190801
  17. XELODA [Suspect]
     Active Substance: CAPECITABINE
     Indication: RECTAL CANCER METASTATIC
     Route: 048
     Dates: start: 20190801
  18. IRINOTECAN HYDROCHLORIDE. [Suspect]
     Active Substance: IRINOTECAN HYDROCHLORIDE
     Route: 041
     Dates: start: 20200909
  19. CALCIUM FOLINATE [Suspect]
     Active Substance: LEUCOVORIN CALCIUM
     Route: 065
     Dates: start: 20190701
  20. CALCIUM FOLINATE [Suspect]
     Active Substance: LEUCOVORIN CALCIUM
     Route: 042
     Dates: start: 20200923
  21. FLUOROURACIL. [Suspect]
     Active Substance: FLUOROURACIL
     Dosage: 700MG VIA INTRAVENOUS INJECTION, 4000MG VIA MICROINJECTION PUMP LASTING FOR 46 HOURS
     Route: 042
     Dates: start: 20190606
  22. CETUXIMAB. [Suspect]
     Active Substance: CETUXIMAB
     Route: 041
     Dates: start: 20200923
  23. CETUXIMAB. [Suspect]
     Active Substance: CETUXIMAB
     Route: 041
     Dates: start: 20201012
  24. CETUXIMAB. [Suspect]
     Active Substance: CETUXIMAB
     Route: 041
     Dates: start: 20201127
  25. IRINOTECAN HYDROCHLORIDE. [Suspect]
     Active Substance: IRINOTECAN HYDROCHLORIDE
     Route: 041
     Dates: start: 20201012
  26. CALCIUM FOLINATE [Suspect]
     Active Substance: LEUCOVORIN CALCIUM
     Route: 065
     Dates: start: 20190518
  27. CALCIUM FOLINATE [Suspect]
     Active Substance: LEUCOVORIN CALCIUM
     Route: 042
     Dates: start: 20201112
  28. FLUOROURACIL. [Suspect]
     Active Substance: FLUOROURACIL
     Dosage: 700MG VIA INTRAVENOUS INJECTION, 4000MG VIA MICROINJECTION PUMP LASTING FOR 46 HOURS
     Route: 042
     Dates: start: 20201012
  29. OXALIPLATIN. [Concomitant]
     Active Substance: OXALIPLATIN
     Dosage: DAY1, 1-AUG-2019, 28-AUG-2019, 22-SEP-2019,
     Dates: start: 20190518
  30. XELODA [Suspect]
     Active Substance: CAPECITABINE
     Route: 048
     Dates: start: 20190922
  31. CETUXIMAB. [Suspect]
     Active Substance: CETUXIMAB
     Indication: RECTAL CANCER METASTATIC
     Dosage: DAY 1
     Route: 041
     Dates: start: 20200825
  32. CALCIUM FOLINATE [Suspect]
     Active Substance: LEUCOVORIN CALCIUM
     Route: 065
     Dates: start: 20190606
  33. FLUOROURACIL. [Suspect]
     Active Substance: FLUOROURACIL
     Indication: RECTAL CANCER METASTATIC
     Dosage: 700MG VIA INTRAVENOUS INJECTION, 4000MG VIA MICROINJECTION PUMP LASTING FOR 46 HOURS
     Route: 042
     Dates: start: 20190501
  34. FLUOROURACIL. [Suspect]
     Active Substance: FLUOROURACIL
     Dosage: 700MG VIA INTRAVENOUS INJECTION, 4000MG VIA MICROINJECTION PUMP LASTING FOR 46 HOURS
     Route: 042
     Dates: start: 20190701
  35. OXALIPLATIN. [Concomitant]
     Active Substance: OXALIPLATIN
     Dates: start: 20190701
  36. OXALIPLATIN. [Concomitant]
     Active Substance: OXALIPLATIN
     Route: 041
     Dates: start: 20190828
  37. CETUXIMAB. [Suspect]
     Active Substance: CETUXIMAB
     Route: 041
     Dates: start: 20200909
  38. CALCIUM FOLINATE [Suspect]
     Active Substance: LEUCOVORIN CALCIUM
     Route: 042
     Dates: start: 20201027
  39. OXALIPLATIN. [Concomitant]
     Active Substance: OXALIPLATIN
     Dates: start: 20190606
  40. IRINOTECAN HYDROCHLORIDE. [Suspect]
     Active Substance: IRINOTECAN HYDROCHLORIDE
     Route: 041
     Dates: start: 20201027
  41. IRINOTECAN HYDROCHLORIDE. [Suspect]
     Active Substance: IRINOTECAN HYDROCHLORIDE
     Route: 041
     Dates: start: 20201129
  42. CALCIUM FOLINATE [Suspect]
     Active Substance: LEUCOVORIN CALCIUM
     Route: 042
     Dates: start: 20201012
  43. FLUOROURACIL. [Suspect]
     Active Substance: FLUOROURACIL
     Dosage: 700MG VIA INTRAVENOUS INJECTION, 4000MG VIA MICROINJECTION PUMP LASTING FOR 46 HOURS
     Route: 042
     Dates: start: 20200825

REACTIONS (11)
  - Skin fissures [Unknown]
  - Listless [Unknown]
  - Mouth ulceration [Unknown]
  - Asthenia [Unknown]
  - Thrombosis [Unknown]
  - Nausea [Unknown]
  - Feeding disorder [Unknown]
  - Acute kidney injury [Unknown]
  - Mucocutaneous disorder [Unknown]
  - Vomiting [Unknown]
  - Emphysema [Unknown]
